FAERS Safety Report 7010760-1 (Version None)
Quarter: 2010Q3

REPORT INFORMATION
  Report Type: 
  Country: None (occurrence: None)
  Receive Date: 20100923
  Receipt Date: 20100915
  Transmission Date: 20110219
  Serious: No
  Sender: FDA-Public Use
  Company Number: US-PFIZER INC-2010117639

PATIENT
  Sex: Male
  Weight: 111.11 kg

DRUGS (3)
  1. SERTRALINE HYDROCHLORIDE [Suspect]
     Indication: DEPRESSION
     Dosage: 100 MG, ONCE A DAY
     Route: 048
     Dates: start: 20100801
  2. SERTRALINE HYDROCHLORIDE [Suspect]
     Indication: ANXIETY
  3. ADDERALL 10 [Concomitant]
     Dosage: UNK

REACTIONS (6)
  - ERECTILE DYSFUNCTION [None]
  - FATIGUE [None]
  - POOR QUALITY SLEEP [None]
  - SENSORY LOSS [None]
  - SEXUAL DYSFUNCTION [None]
  - SOMNOLENCE [None]
